FAERS Safety Report 23994989 (Version 4)
Quarter: 2024Q3

REPORT INFORMATION
  Report Type: Report from Study
  Country: BR (occurrence: BR)
  Receive Date: 20240620
  Receipt Date: 20240705
  Transmission Date: 20241017
  Serious: Yes (Other)
  Sender: CELLTRION
  Company Number: BR-CELLTRION INC.-2024BR014720

PATIENT

DRUGS (5)
  1. INFLIXIMAB [Suspect]
     Active Substance: INFLIXIMAB
     Indication: Crohn^s disease
     Dosage: 4 AMPOULES EVERY 8 WEEKS
     Route: 042
     Dates: start: 202005
  2. INFLIXIMAB [Suspect]
     Active Substance: INFLIXIMAB
     Dosage: 8 AMPOULES EVERY 8 WEEKS
     Route: 042
     Dates: start: 20220916
  3. INFLIXIMAB [Suspect]
     Active Substance: INFLIXIMAB
     Dosage: 8 AMPOULES EVERY 8 WEEKS
     Route: 042
     Dates: start: 20240617
  4. LEVOTHYROXINE [Concomitant]
     Active Substance: LEVOTHYROXINE\LEVOTHYROXINE SODIUM
     Indication: Hypothyroidism
     Dosage: 1 PILL A DAY (START DATE: 20 YEARS AGO)
     Route: 048
  5. AZATHIOPRINE [Concomitant]
     Active Substance: AZATHIOPRINE
     Indication: Crohn^s disease
     Dosage: 3 PILLS A DAY
     Route: 048
     Dates: start: 202002

REACTIONS (2)
  - Anal fistula [Recovered/Resolved]
  - Inappropriate schedule of product administration [Unknown]

NARRATIVE: CASE EVENT DATE: 20240607
